FAERS Safety Report 16030370 (Version 1)
Quarter: 2019Q2

REPORT INFORMATION
  Report Type: Spontaneous
  Country: US (occurrence: US)
  Receive Date: 20190304
  Receipt Date: 20190304
  Transmission Date: 20190711
  Serious: Yes (Hospitalization)
  Sender: FDA-Public Use
  Company Number: None

PATIENT
  Age: 75 Year
  Sex: Female
  Weight: 59 kg

DRUGS (1)
  1. DOXORUBICIN HCL PEG-LIPOSOMAL 2 MG/ML [Suspect]
     Active Substance: DOXORUBICIN HYDROCHLORIDE
     Indication: BREAST CANCER
     Dosage: ?          OTHER FREQUENCY:EVERY 3 WEEKS;?
     Route: 042
     Dates: start: 20190220

REACTIONS (4)
  - Back pain [None]
  - Chest discomfort [None]
  - Dyspnoea [None]
  - Erythema [None]

NARRATIVE: CASE EVENT DATE: 20190220
